FAERS Safety Report 5856885-5 (Version None)
Quarter: 2008Q3

REPORT INFORMATION
  Report Type: 
  Country: None (occurrence: None)
  Receive Date: 20080822
  Receipt Date: 20080822
  Transmission Date: 20090109
  Serious: Yes (Life-Threatening, Hospitalization)
  Sender: FDA-Public Use
  Company Number: None

PATIENT
  Age: 22 Year
  Sex: Female
  Weight: 58.9676 kg

DRUGS (3)
  1. PROAIR HFA [Suspect]
     Indication: ASTHMA
     Dosage: -ROUND HIGHEST
  2. PROVENTIL-HFA [Suspect]
  3. ADVAIR DISKUS 100/50 [Suspect]

REACTIONS (2)
  - DRUG HYPERSENSITIVITY [None]
  - FEAR [None]
